FAERS Safety Report 4772213-0 (Version None)
Quarter: 2005Q3

REPORT INFORMATION
  Report Type: 
  Country: None (occurrence: None)
  Receive Date: 20050919
  Receipt Date: 20050121
  Transmission Date: 20060218
  Serious: No
  Sender: FDA-Public Use
  Company Number: US-BRISTOL-MYERS SQUIBB COMPANY-12836144

PATIENT
  Age: 69 Year
  Sex: Male
  Weight: 95 kg

DRUGS (2)
  1. DEFINITY [Suspect]
     Indication: STRESS ECHOCARDIOGRAM
     Route: 040
     Dates: start: 20050121, end: 20050121
  2. DOBUTAMINE HCL [Suspect]

REACTIONS (2)
  - BRADYCARDIA [None]
  - VENTRICULAR TACHYCARDIA [None]
